FAERS Safety Report 7308126-X (Version None)
Quarter: 2011Q1

REPORT INFORMATION
  Report Type: 
  Country: None (occurrence: None)
  Receive Date: 20110223
  Receipt Date: 20110208
  Transmission Date: 20110831
  Serious: Yes (Other)
  Sender: FDA-Public Use
  Company Number: NL-MEDIMMUNE-MEDI-0012690

PATIENT
  Sex: Female

DRUGS (2)
  1. SYNAGIS [Suspect]
     Route: 030
     Dates: start: 20110208, end: 20110208
  2. SYNAGIS [Suspect]
     Route: 030
     Dates: start: 20101214, end: 20110111

REACTIONS (3)
  - VENTRICULAR SEPTAL DEFECT [None]
  - FEELING HOT [None]
  - PYREXIA [None]
